FAERS Safety Report 12304805 (Version 1)
Quarter: 2016Q2

REPORT INFORMATION
  Report Type: Spontaneous
  Country: US (occurrence: US)
  Receive Date: 20160426
  Receipt Date: 20160426
  Transmission Date: 20160815
  Serious: No
  Sender: FDA-Public Use
  Company Number: US-BAYER-2016-075517

PATIENT
  Age: 48 Year
  Sex: Female
  Weight: 58.96 kg

DRUGS (2)
  1. SYNTHROID [Concomitant]
     Active Substance: LEVOTHYROXINE SODIUM
  2. CLARITIN-D 24 HOUR [Suspect]
     Active Substance: LORATADINE\PSEUDOEPHEDRINE SULFATE
     Indication: ALLERGY TO ANIMAL
     Dosage: 1 DF, ONCE
     Dates: start: 20160417, end: 20160417

REACTIONS (2)
  - Feeling abnormal [None]
  - Heart rate increased [None]

NARRATIVE: CASE EVENT DATE: 20160417
